FAERS Safety Report 13413606 (Version 2)
Quarter: 2017Q4

REPORT INFORMATION
  Report Type: Spontaneous
  Country: US (occurrence: US)
  Receive Date: 20170406
  Receipt Date: 20171123
  Transmission Date: 20180320
  Serious: No
  Sender: FDA-Public Use
  Company Number: US-JNJFOC-20170317868

PATIENT
  Sex: Male

DRUGS (2)
  1. RISPERDAL M-TAB [Suspect]
     Active Substance: RISPERIDONE
     Indication: SCHIZOAFFECTIVE DISORDER
     Dosage: VARYING DOSES OF 1 MG AND 2 MG AND VARYING FREQUENCIES.
     Route: 048
     Dates: start: 20050609, end: 20050622
  2. RISPERDAL [Suspect]
     Active Substance: RISPERIDONE
     Indication: SCHIZOAFFECTIVE DISORDER
     Dosage: VARYING DOSES OF 1 MG, 2 MG, 3 MG, 4 MG AND VARYING FREQUENCIES
     Route: 048
     Dates: start: 20050523, end: 20120830

REACTIONS (2)
  - Emotional disorder [Unknown]
  - Gynaecomastia [Unknown]
